FAERS Safety Report 4453768-2 (Version None)
Quarter: 2004Q3

REPORT INFORMATION
  Report Type: 
  Country: None (occurrence: None)
  Receive Date: 20040915
  Receipt Date: 20040915
  Transmission Date: 20050211
  Serious: Yes (Hospitalization)
  Sender: FDA-Public Use
  Company Number: None

PATIENT
  Age: 72 Year
  Sex: Male
  Weight: 82.8 kg

DRUGS (14)
  1. DIGOXIN [Suspect]
     Indication: CORONARY ARTERY DISEASE
     Dosage: 0.125MG  DAILY  ORAL
     Route: 048
     Dates: start: 20040203, end: 20040220
  2. NOVOLIN 70/30 [Concomitant]
  3. INSULIN NPH NUMAN [Concomitant]
  4. HUMULIN R [Concomitant]
  5. LANOXIN [Concomitant]
  6. INSULIN SYRINGE [Concomitant]
  7. RANITIDINE HCL [Concomitant]
  8. SIMVASTATIN [Concomitant]
  9. FUROSEMIDE [Concomitant]
  10. ISOSORBIDE DINITRATE [Concomitant]
  11. LISINOPRIL [Concomitant]
  12. METOPROLOL [Concomitant]
  13. NITROGLYCERIN [Concomitant]
  14. CLOPIDOGREL BISULFATE [Concomitant]

REACTIONS (5)
  - ASTHENIA [None]
  - DIZZINESS [None]
  - HALO VISION [None]
  - MEDICATION ERROR [None]
  - VISION BLURRED [None]
